FAERS Safety Report 11116582 (Version 1)
Quarter: 2015Q2

REPORT INFORMATION
  Report Type: Spontaneous
  Country: US (occurrence: US)
  Receive Date: 20150515
  Receipt Date: 20150515
  Transmission Date: 20150821
  Serious: Yes (Death)
  Sender: FDA-Public Use
  Company Number: US-JNJFOC-20150502530

PATIENT
  Age: 35 Year
  Sex: Female
  Weight: 40.82 kg

DRUGS (3)
  1. WOMENS ROGAINE UNSCENTED [Suspect]
     Active Substance: MINOXIDIL
     Indication: HAIR GROWTH ABNORMAL
     Dosage: HALF A CAPFUL
     Route: 061
  2. WOMENS ROGAINE UNSCENTED [Suspect]
     Active Substance: MINOXIDIL
     Indication: VASCULAR OPERATION
     Dosage: HALF A CAPFUL
     Route: 061
  3. UNSPECIFED MEDICATIONS [Concomitant]
     Active Substance: UNSPECIFIED INGREDIENT
     Route: 065

REACTIONS (3)
  - Off label use [Unknown]
  - Exfoliative rash [Unknown]
  - Death [Fatal]
